FAERS Safety Report 9605928 (Version 1)
Quarter: 2013Q4

REPORT INFORMATION
  Report Type: Spontaneous
  Country: DK (occurrence: FI)
  Receive Date: 20131008
  Receipt Date: 20131008
  Transmission Date: 20140711
  Serious: Yes (Hospitalization, Disabling)
  Sender: FDA-Public Use
  Company Number: FI-FRI-1000049751

PATIENT
  Age: 27 Year
  Sex: Female

DRUGS (2)
  1. ESCITALOPRAM [Suspect]
     Indication: ANXIETY
     Dosage: 2.5 - 15 MG DAILY
     Route: 048
     Dates: start: 20051215, end: 20120301
  2. ESCITALOPRAM [Suspect]
     Indication: EMOTIONAL DISTRESS

REACTIONS (1)
  - Drug withdrawal syndrome [Not Recovered/Not Resolved]
